FAERS Safety Report 8076472-0 (Version None)
Quarter: 2011Q4

REPORT INFORMATION
  Report Type: 
  Country: None (occurrence: None)
  Receive Date: 20111221
  Receipt Date: 20110712
  Transmission Date: 20120403
  Serious: Yes (Hospitalization, Other)
  Sender: FDA-Public Use
  Company Number: PHHY2010US40959

PATIENT
  Age: 28 Year
  Sex: Female
  Weight: 57.9 kg

DRUGS (8)
  1. OXYCODONE HCL [Concomitant]
  2. NAPROXEN [Concomitant]
  3. PENTOXIFYLLINE [Concomitant]
  4. HYDROCODONE BITARTRATE [Concomitant]
  5. EXJADE [Suspect]
     Indication: CHELATION THERAPY
     Dosage: 1000 MG, QD, ORAL
     Route: 048
     Dates: end: 20101105
  6. FOLIC ACID [Concomitant]
  7. ACETAMINOPHEN [Concomitant]
  8. ZINC SULFATE (ZINC SULFATE) [Concomitant]

REACTIONS (3)
  - SICKLE CELL ANAEMIA WITH CRISIS [None]
  - VOMITING [None]
  - DIARRHOEA [None]
